FAERS Safety Report 10706376 (Version 1)
Quarter: 2015Q1

REPORT INFORMATION
  Report Type: Spontaneous
  Country: FI (occurrence: None)
  Receive Date: 20150109
  Receipt Date: 20150109
  Transmission Date: 20150721
  Serious: Yes (Life-Threatening)
  Sender: FDA-Public Use
  Company Number: 2693306

PATIENT
  Age: 79 Year
  Sex: Male

DRUGS (2)
  1. PACLITAXEL. [Suspect]
     Active Substance: PACLITAXEL
     Indication: LUNG NEOPLASM MALIGNANT
     Dosage: NOT OTHERWISE SPECIFIED
     Route: 042
     Dates: start: 20141113, end: 20141211
  2. CARBOPLATIN. [Concomitant]
     Active Substance: CARBOPLATIN

REACTIONS (7)
  - Weight decreased [None]
  - Depressed level of consciousness [None]
  - Cough [None]
  - Diarrhoea [None]
  - Lung squamous cell carcinoma metastatic [None]
  - Back pain [None]
  - Hypertension [None]
